FAERS Safety Report 7519480-8 (Version None)
Quarter: 2011Q2

REPORT INFORMATION
  Report Type: 
  Country: None (occurrence: None)
  Receive Date: 20110602
  Receipt Date: 20110526
  Transmission Date: 20111010
  Serious: Yes (Hospitalization)
  Sender: FDA-Public Use
  Company Number: FR-MERCK-1105USA04132

PATIENT
  Age: 61 Year
  Sex: Male

DRUGS (8)
  1. NIACINAMIDE [Concomitant]
     Route: 065
  2. RIBOFLAVIN [Concomitant]
     Route: 065
  3. THIAMINE [Concomitant]
     Route: 065
  4. VYTORIN [Suspect]
     Indication: HYPERCHOLESTEROLAEMIA
     Route: 048
     Dates: start: 20101228, end: 20110112
  5. DOMPERIDONE [Concomitant]
     Route: 065
  6. PANTOTHENIC ACID [Concomitant]
     Route: 065
  7. ATROVENT [Concomitant]
     Route: 065
  8. PYRIDOXINE [Concomitant]
     Route: 065

REACTIONS (2)
  - MYOSITIS [None]
  - MOTOR DYSFUNCTION [None]
